FAERS Safety Report 18142692 (Version 1)
Quarter: 2020Q3

REPORT INFORMATION
  Report Type: Spontaneous
  Country: BE (occurrence: BE)
  Receive Date: 20200812
  Receipt Date: 20200812
  Transmission Date: 20201103
  Serious: Yes (Death)
  Sender: FDA-Public Use
  Company Number: BE-ENDO PHARMACEUTICALS INC-2020-005392

PATIENT
  Age: 80 Year
  Sex: Male

DRUGS (1)
  1. MELPHALAN HYDROCHLORIDE. [Suspect]
     Active Substance: MELPHALAN HYDROCHLORIDE
     Indication: ACUTE MYELOID LEUKAEMIA
     Dosage: LOW DOSE (15?25 MG/M^2)
     Route: 042

REACTIONS (1)
  - Cerebral haemorrhage [Fatal]
